FAERS Safety Report 5001831-X (Version None)
Quarter: 2006Q2

REPORT INFORMATION
  Report Type: 
  Country: None (occurrence: None)
  Receive Date: 20060515
  Receipt Date: 20060510
  Transmission Date: 20061013
  Serious: Yes (Other)
  Sender: FDA-Public Use
  Company Number: US-GLAXOSMITHKLINE-A0605446A

PATIENT
  Sex: Female
  Weight: 2 kg

DRUGS (3)
  1. SUMATRIPTAN SUCCINATE [Suspect]
     Dates: start: 20051112, end: 20060330
  2. LAMICTAL [Suspect]
  3. EFFEXOR [Concomitant]

REACTIONS (2)
  - DRUG EXPOSURE DURING PREGNANCY [None]
  - PREMATURE LABOUR [None]
